FAERS Safety Report 4723852-4 (Version None)
Quarter: 2005Q3

REPORT INFORMATION
  Report Type: 
  Country: None (occurrence: None)
  Receive Date: 20050721
  Receipt Date: 20050701
  Transmission Date: 20060218
  Serious: Yes (Life-Threatening, Hospitalization, Disabling, Other)
  Sender: FDA-Public Use
  Company Number: US_0506118137

PATIENT
  Age: 6 Year
  Sex: Male
  Weight: 37 kg

DRUGS (2)
  1. STRATTERA [Suspect]
     Indication: ATTENTION DEFICIT/HYPERACTIVITY DISORDER
     Dosage: 40 MG DAY
     Dates: start: 20030604
  2. CONCERTA [Concomitant]

REACTIONS (10)
  - ARTERIAL SPASM [None]
  - CEREBROVASCULAR ACCIDENT [None]
  - CRYING [None]
  - DROOLING [None]
  - DYSARTHRIA [None]
  - EAR PAIN [None]
  - FACIAL PALSY [None]
  - HEADACHE [None]
  - HEMIPARESIS [None]
  - SCREAMING [None]
